FAERS Safety Report 8816133 (Version 1)
Quarter: 2012Q4

REPORT INFORMATION
  Report Type: 
  Country: BR (occurrence: BR)
  Receive Date: 20120929
  Receipt Date: 20120929
  Transmission Date: 20130627
  Serious: Yes (Other)
  Sender: FDA-Public Use
  Company Number: BR-ACCORD-014783

PATIENT
  Age: 61 Year
  Sex: Female
  Weight: 67.2 kg

DRUGS (3)
  1. RANITIDINE [Concomitant]
     Route: 042
     Dates: start: 20120731, end: 20120731
  2. PACLITAXEL [Suspect]
     Indication: OVARIAN ADENOCARCINOMA
     Route: 042
     Dates: start: 20120731, end: 20120731
  3. ONDANSETRON [Concomitant]
     Indication: DRUG USE FOR UNKNOWN INDICATION
     Route: 042
     Dates: start: 20120731, end: 20120731

REACTIONS (5)
  - Hypertension [Recovered/Resolved]
  - Tachycardia [Recovered/Resolved]
  - Chills [Recovered/Resolved]
  - Dyspnoea [Recovered/Resolved]
  - Dizziness [Recovered/Resolved]
